FAERS Safety Report 21774098 (Version 5)
Quarter: 2023Q1

REPORT INFORMATION
  Report Type: Report from Study
  Country: US (occurrence: US)
  Receive Date: 20221223
  Receipt Date: 20230111
  Transmission Date: 20230418
  Serious: Yes (Other)
  Sender: FDA-Public Use
  Company Number: US-JAZZ-2022-US-037376

PATIENT
  Age: 47 Year
  Sex: Female

DRUGS (9)
  1. XYREM [Suspect]
     Active Substance: SODIUM OXYBATE
     Indication: Narcolepsy
     Dosage: 3.75 GRAM, BID
  2. XYREM [Suspect]
     Active Substance: SODIUM OXYBATE
     Indication: Cataplexy
  3. XYREM [Suspect]
     Active Substance: SODIUM OXYBATE
     Indication: Somnolence
  4. HYDROCODONE [Suspect]
     Active Substance: HYDROCODONE
     Indication: Product used for unknown indication
  5. DULOXETINE HYDROCHLORIDE [Concomitant]
     Active Substance: DULOXETINE HYDROCHLORIDE
     Indication: Product used for unknown indication
     Dosage: UNK
     Dates: start: 20221001
  6. SUNOSI [Concomitant]
     Active Substance: SOLRIAMFETOL
     Indication: Product used for unknown indication
     Dosage: UNK
     Dates: start: 20221116
  7. PRASTERONE [Concomitant]
     Active Substance: PRASTERONE
     Indication: Product used for unknown indication
     Dosage: UNK
  8. PRASTERONE [Concomitant]
     Active Substance: PRASTERONE
     Dosage: UNK
  9. IBUPROFEN [Concomitant]
     Active Substance: IBUPROFEN
     Indication: Product used for unknown indication
     Dosage: UNK
     Dates: start: 20221207

REACTIONS (21)
  - Lower limb fracture [Unknown]
  - Laparoscopic surgery [Unknown]
  - Gallbladder disorder [Unknown]
  - Oophorectomy [Unknown]
  - Bladder operation [Unknown]
  - Hallucination [Unknown]
  - Panic reaction [Unknown]
  - Feeling jittery [Unknown]
  - Micturition urgency [Unknown]
  - Disorientation [Unknown]
  - Feeling abnormal [Unknown]
  - Depression [Unknown]
  - Memory impairment [Unknown]
  - Dizziness [Unknown]
  - Nausea [Unknown]
  - Vomiting [Unknown]
  - Anxiety [Unknown]
  - Confusional state [Unknown]
  - Somnambulism [Unknown]
  - Therapeutic product effect prolonged [Unknown]
  - Drug titration error [Unknown]

NARRATIVE: CASE EVENT DATE: 20221001
